FAERS Safety Report 4755922-9 (Version None)
Quarter: 2005Q3

REPORT INFORMATION
  Report Type: 
  Country: None (occurrence: None)
  Receive Date: 20050830
  Receipt Date: 20050823
  Transmission Date: 20060218
  Serious: Yes (Death)
  Sender: FDA-Public Use
  Company Number: FR-JNJFOC-20050805411

PATIENT
  Age: 68 Year
  Sex: Male

DRUGS (2)
  1. INFLIXIMAB [Suspect]
     Indication: POLYMYOSITIS
     Dosage: WEEKS 0,2 AND 6
     Route: 042
  2. PREDNISONE [Concomitant]

REACTIONS (2)
  - MYCOBACTERIAL INFECTION [None]
  - RESPIRATORY FAILURE [None]
